FAERS Safety Report 18327007 (Version 1)
Quarter: 2020Q3

REPORT INFORMATION
  Report Type: Report from Study
  Country: US (occurrence: US)
  Receive Date: 20200930
  Receipt Date: 20200930
  Transmission Date: 20201103
  Serious: No
  Sender: FDA-Public Use
  Company Number: NVSC2020US258229

PATIENT
  Age: 37 Year
  Sex: Female

DRUGS (1)
  1. ILARIS [Suspect]
     Active Substance: CANAKINUMAB
     Indication: CRYOPYRIN ASSOCIATED PERIODIC SYNDROME
     Dosage: 600 MG, Q8W
     Route: 065
     Dates: start: 20131031

REACTIONS (2)
  - Normal newborn [Unknown]
  - Exposure via partner [Unknown]

NARRATIVE: CASE EVENT DATE: 20200804
